FAERS Safety Report 5218965-7 (Version None)
Quarter: 2007Q1

REPORT INFORMATION
  Report Type: 
  Country: None (occurrence: None)
  Receive Date: 20070123
  Receipt Date: 20070110
  Transmission Date: 20070707
  Serious: Yes (Death)
  Sender: FDA-Public Use
  Company Number: MC200700032

PATIENT
  Sex: Male

DRUGS (2)
  1. ANGIOMAX [Suspect]
     Indication: DRUG USE FOR UNKNOWN INDICATION
  2. HEPARIN [Concomitant]

REACTIONS (4)
  - ANOXIC ENCEPHALOPATHY [None]
  - CARDIO-RESPIRATORY ARREST [None]
  - COAGULOPATHY [None]
  - HAEMORRHAGE [None]
